FAERS Safety Report 10178601 (Version 1)
Quarter: 2014Q2

REPORT INFORMATION
  Report Type: Spontaneous
  Country: US (occurrence: US)
  Receive Date: 20140519
  Receipt Date: 20140519
  Transmission Date: 20141212
  Serious: No
  Sender: FDA-Public Use
  Company Number: US-BAYER-2014-073397

PATIENT
  Age: 72 Year
  Sex: Female
  Weight: 52.15 kg

DRUGS (4)
  1. ALEVE CAPLET [Suspect]
     Indication: PAIN IN EXTREMITY
     Dosage: 1 DF, EVERY 12 HOURS
     Route: 048
     Dates: start: 20140513
  2. SINGULAIR [Concomitant]
     Dosage: UNK
  3. SPIRIVA [Concomitant]
     Dosage: UNK
  4. SYMBICORT [Concomitant]
     Dosage: UNK

REACTIONS (1)
  - Drug ineffective [None]
